FAERS Safety Report 13162368 (Version 1)
Quarter: 2017Q1

REPORT INFORMATION
  Report Type: Spontaneous
  Country: IN (occurrence: US)
  Receive Date: 20170127
  Receipt Date: 20170127
  Transmission Date: 20170428
  Serious: Yes (Other)
  Sender: FDA-Public Use
  Company Number: None

PATIENT
  Age: 25 Year
  Sex: Male
  Weight: 70 kg

DRUGS (1)
  1. TESTA ENANTHATE [Suspect]
     Active Substance: TESTOSTERONE ENANTHATE
     Indication: PRODUCT USED FOR UNKNOWN INDICATION
     Dosage: ?          OTHER FREQUENCY:1 WEEK;?
     Route: 058
     Dates: start: 20170116, end: 20170123

REACTIONS (2)
  - Swollen tongue [None]
  - Pharyngeal oedema [None]

NARRATIVE: CASE EVENT DATE: 20170126
